FAERS Safety Report 9949414 (Version 1)
Quarter: 2014Q1

REPORT INFORMATION
  Report Type: Spontaneous
  Country: US (occurrence: None)
  Receive Date: 20140122
  Receipt Date: 20140122
  Transmission Date: 20141002
  Serious: Yes (Other)
  Sender: FDA-Public Use
  Company Number: AEGR000185

PATIENT
  Age: 55 Year
  Sex: Male
  Weight: 124.7 kg

DRUGS (11)
  1. JUXTAPID [Suspect]
     Route: 048
     Dates: start: 20130926
  2. WARFARIN SODIUM (WARFARIN SODIUM) [Concomitant]
  3. IMDUR (ISOSORBIDE MONONITRATE) [Concomitant]
  4. GLYBURIDE (GLIBENCLAMIDE) [Concomitant]
  5. LOVAZA (OMEGA-3-ACID ETHYL ESTER) [Concomitant]
  6. ASPIRIN (ACETYLSALICYLIC ACID) [Concomitant]
  7. JANUMET (METFORMIN HYDROCHLORIDE, SITAGLIPTIN PHOSPHATE MONOHYDRATE) [Concomitant]
  8. LISINOPRIL (LISINOPRIL) [Concomitant]
  9. DIGOXIN (DIGOXIN) [Concomitant]
  10. VICTOZA (LIRAGLUTIDE) [Concomitant]
  11. LANTUS (INSULIN GLARGINE) [Concomitant]

REACTIONS (1)
  - Diarrhoea [None]
